FAERS Safety Report 5772312-0 (Version None)
Quarter: 2008Q2

REPORT INFORMATION
  Report Type: 
  Country: None (occurrence: None)
  Receive Date: 20080610
  Receipt Date: 20080602
  Transmission Date: 20081010
  Serious: Yes (Other)
  Sender: FDA-Public Use
  Company Number: 07H-163-0312965-00

PATIENT
  Age: 46 Year
  Sex: Female

DRUGS (5)
  1. LEUCOVORIN CALCIUM [Suspect]
  2. HEPARIN SODIUM INJECTION [Suspect]
     Indication: COLON CANCER
     Dosage: 500 UNITS, ONCE, CATHETER FLUSH; 80 UNITS/KG, INTRAVENOUS BOLUS; 18 UNITS/KGH/H, INTRAVENOUS DRIP
     Route: 041
  3. HEPARIN SODIUM INJECTION [Suspect]
     Indication: INTRAVENOUS CATHETER MANAGEMENT
     Dosage: 500 UNITS, ONCE, CATHETER FLUSH; 80 UNITS/KG, INTRAVENOUS BOLUS; 18 UNITS/KGH/H, INTRAVENOUS DRIP
     Route: 041
  4. HEPARIN SODIUM INJECTION [Suspect]
     Indication: MESENTERIC VEIN THROMBOSIS
     Dosage: 500 UNITS, ONCE, CATHETER FLUSH; 80 UNITS/KG, INTRAVENOUS BOLUS; 18 UNITS/KGH/H, INTRAVENOUS DRIP
     Route: 041
  5. FLUOROURACIL [Suspect]
     Indication: COLON CANCER

REACTIONS (9)
  - ABDOMINAL PAIN [None]
  - ACUTE MYOCARDIAL INFARCTION [None]
  - DEHYDRATION [None]
  - DIARRHOEA [None]
  - HEPARIN-INDUCED THROMBOCYTOPENIA [None]
  - MESENTERIC VEIN THROMBOSIS [None]
  - NAUSEA [None]
  - PLATELET COUNT DECREASED [None]
  - VOMITING [None]
